FAERS Safety Report 15783950 (Version 1)
Quarter: 2019Q1

REPORT INFORMATION
  Report Type: Spontaneous
  Country: DK (occurrence: DK)
  Receive Date: 20190102
  Receipt Date: 20190102
  Transmission Date: 20190417
  Serious: Yes (Death)
  Sender: FDA-Public Use
  Company Number: DK-TEVA-2018-DK-993563

PATIENT
  Age: 72 Year
  Sex: Female

DRUGS (6)
  1. PARACETAMOL [Concomitant]
     Active Substance: ACETAMINOPHEN
     Indication: PAIN
     Dosage: DOSAGE: MAXIMUM 4 TIMES DAILY. STRENGTH: 500 MG.
     Route: 048
     Dates: start: 20140423
  2. METOCLOPRAMIDE. [Concomitant]
     Active Substance: METOCLOPRAMIDE
     Indication: MIGRAINE
     Dosage: DOSAGE: UNKNOWN. STRENGTH: UNKNOWN.
     Dates: start: 20181009, end: 20181010
  3. DOXYLAMINE [Concomitant]
     Active Substance: DOXYLAMINE
     Indication: PRODUCT USED FOR UNKNOWN INDICATION
     Dosage: DOSAGE: UNKNOWN. STRENGTH: UNKNOWN.
  4. ZOPICLONE [Concomitant]
     Active Substance: ZOPICLONE
     Indication: INSOMNIA
     Dosage: 7.5 MILLIGRAM DAILY; STRENGTH: 7.5 MG.
     Route: 048
     Dates: start: 20120817
  5. MORPHINE HYDROCHLORIDE TRIHYDRATE [Suspect]
     Active Substance: MORPHINE HYDROCHLORIDE
     Indication: MIGRAINE
     Dosage: DOSAGE: UNKNOWN. STRENGTH: UNKNOWN.
     Route: 065
     Dates: start: 20181009, end: 20181010
  6. SALBUTAMOL [Concomitant]
     Active Substance: ALBUTEROL
     Indication: BRONCHOSPASM
     Dosage: STRENGTH: 0.1 MG / DOSE
     Route: 055
     Dates: start: 201510

REACTIONS (1)
  - Toxicity to various agents [Fatal]

NARRATIVE: CASE EVENT DATE: 20181010
